FAERS Safety Report 9775154 (Version 1)
Quarter: 2013Q4

REPORT INFORMATION
  Report Type: Spontaneous
  Country: US (occurrence: US)
  Receive Date: 20131220
  Receipt Date: 20131220
  Transmission Date: 20140711
  Serious: Yes (Other)
  Sender: FDA-Public Use
  Company Number: US-GILEAD-2010-0026418

PATIENT
  Age: 6 Year
  Sex: Female

DRUGS (1)
  1. VISTIDE [Suspect]

REACTIONS (1)
  - Encephalopathy [Unknown]
